FAERS Safety Report 16778243 (Version 1)
Quarter: 2019Q3

REPORT INFORMATION
  Report Type: Spontaneous
  Country: CH (occurrence: CH)
  Receive Date: 20190905
  Receipt Date: 20190905
  Transmission Date: 20191005
  Serious: Yes (Hospitalization, Other)
  Sender: FDA-Public Use
  Company Number: CH-BAXTER-2019BAX017309

PATIENT
  Age: 54 Year
  Sex: Female
  Weight: 63 kg

DRUGS (15)
  1. CARBOPLATIN. [Suspect]
     Active Substance: CARBOPLATIN
     Indication: POST TRANSPLANT LYMPHOPROLIFERATIVE DISORDER
     Dosage: R-ICE CATCH-UP CHEMOTHERAPY
     Route: 065
     Dates: start: 20190812, end: 20190812
  2. DOXORUBICIN [Suspect]
     Active Substance: DOXORUBICIN
     Indication: POST TRANSPLANT LYMPHOPROLIFERATIVE DISORDER
     Dosage: 3 ROUNDS OF R-CHOP THERAPY
     Route: 065
  3. ENDOXAN 1 G. TROCKENSUBSTANZ ZUR INTRAVEN?SEN INFUSION [Suspect]
     Active Substance: CYCLOPHOSPHAMIDE
     Indication: POST TRANSPLANT LYMPHOPROLIFERATIVE DISORDER
     Dosage: 3 ROUNDS OF R-CHOP THERAPY
     Route: 065
  4. HOLOXAN 2 G [Suspect]
     Active Substance: IFOSFAMIDE
     Dosage: R-ICE CATCH-UP CHEMOTHERAPY, DOSE RE-INTRODUCED
     Route: 041
     Dates: start: 201908
  5. CARBOPLATIN. [Suspect]
     Active Substance: CARBOPLATIN
     Dosage: R-ICE CATCH-UP CHEMOTHERAPY, DOSE RE-INTRODUCED
     Route: 065
     Dates: start: 201908
  6. RITUXIMAB. [Suspect]
     Active Substance: RITUXIMAB
     Indication: POST TRANSPLANT LYMPHOPROLIFERATIVE DISORDER
     Dosage: 3 ROUNDS OF R-CHOP THERAPY
     Route: 065
  7. RITUXIMAB. [Suspect]
     Active Substance: RITUXIMAB
     Dosage: DOSE RE-INTRODUCED
     Route: 065
     Dates: start: 201908
  8. ETOPOSIDE. [Suspect]
     Active Substance: ETOPOSIDE
     Indication: POST TRANSPLANT LYMPHOPROLIFERATIVE DISORDER
     Dosage: R-ICE CATCH-UP CHEMOTHERAPY
     Route: 065
     Dates: start: 20190811, end: 20190811
  9. ETOPOSIDE. [Suspect]
     Active Substance: ETOPOSIDE
     Dosage: R-ICE CATCH-UP CHEMOTHERAPY, DOSE RE-INTRODUCED
     Route: 065
     Dates: start: 201908
  10. VINCRISTINE [Suspect]
     Active Substance: VINCRISTINE
     Indication: POST TRANSPLANT LYMPHOPROLIFERATIVE DISORDER
     Dosage: 3 ROUNDS OF R-CHOP THERAPY
     Route: 065
  11. RITUXIMAB. [Suspect]
     Active Substance: RITUXIMAB
     Dosage: R-ICE CATCH-UP CHEMOTHERAPY
     Route: 065
     Dates: start: 20190810, end: 20190810
  12. PREDNISOLONE. [Suspect]
     Active Substance: PREDNISOLONE
     Indication: POST TRANSPLANT LYMPHOPROLIFERATIVE DISORDER
     Dosage: 3 ROUNDS OF R-CHOP THERAPY
     Route: 065
  13. CEFEPIME [Suspect]
     Active Substance: CEFEPIME HYDROCHLORIDE
     Dosage: DOSE RE-INTRODUCED
     Route: 065
     Dates: start: 201908
  14. HOLOXAN 2 G [Suspect]
     Active Substance: IFOSFAMIDE
     Indication: POST TRANSPLANT LYMPHOPROLIFERATIVE DISORDER
     Dosage: R-ICE CATCH-UP CHEMOTHERAPY
     Route: 041
     Dates: start: 20190812, end: 20190812
  15. CEFEPIME [Suspect]
     Active Substance: CEFEPIME HYDROCHLORIDE
     Indication: ANTIBIOTIC THERAPY
     Route: 065
     Dates: end: 20190813

REACTIONS (11)
  - Carotid artery occlusion [Unknown]
  - Executive dysfunction [Not Recovered/Not Resolved]
  - Condition aggravated [Unknown]
  - Speech disorder [Not Recovered/Not Resolved]
  - Neurologic neglect syndrome [Not Recovered/Not Resolved]
  - Acute kidney injury [Unknown]
  - Encephalopathy [Not Recovered/Not Resolved]
  - Post transplant lymphoproliferative disorder [Unknown]
  - Disease progression [Unknown]
  - Antibiotic level above therapeutic [Recovering/Resolving]
  - Carotid artery stenosis [Unknown]

NARRATIVE: CASE EVENT DATE: 201908
